FAERS Safety Report 6373333-X (Version None)
Quarter: 2009Q3

REPORT INFORMATION
  Report Type: 
  Country: None (occurrence: None)
  Receive Date: 20090924
  Receipt Date: 20090408
  Transmission Date: 20100115
  Serious: No
  Sender: FDA-Public Use
  Company Number: US-ASTRAZENECA-2009UW08945

PATIENT
  Age: 33 Year
  Sex: Female

DRUGS (3)
  1. SEROQUEL [Suspect]
     Route: 048
     Dates: start: 20090406
  2. CYMBALTA [Concomitant]
  3. ABILIFY [Concomitant]

REACTIONS (5)
  - ANXIETY [None]
  - FEAR [None]
  - FEELING ABNORMAL [None]
  - INSOMNIA [None]
  - PALPITATIONS [None]
